FAERS Safety Report 10545189 (Version 1)
Quarter: 2014Q4

REPORT INFORMATION
  Report Type: Spontaneous
  Country: US (occurrence: US)
  Receive Date: 20141027
  Receipt Date: 20141027
  Transmission Date: 20150529
  Serious: Yes (Other)
  Sender: FDA-Public Use
  Company Number: US-BAYER-2014-153405

PATIENT
  Age: 34 Year
  Sex: Female

DRUGS (5)
  1. BAYER LOW DOSE [Suspect]
     Active Substance: ASPIRIN
     Indication: ANTICOAGULANT THERAPY
     Dosage: 81 MG, ONCE
     Route: 048
     Dates: start: 20141014, end: 20141014
  2. BAYER LOW DOSE [Suspect]
     Active Substance: ASPIRIN
     Indication: THROMBOSIS PROPHYLAXIS
  3. NORCO [Concomitant]
     Active Substance: ACETAMINOPHEN\HYDROCODONE BITARTRATE
     Dosage: UNK,
  4. MOTRIN [Concomitant]
     Active Substance: IBUPROFEN
     Dosage: UNK,
  5. IBUPROFEN. [Concomitant]
     Active Substance: IBUPROFEN
     Dosage: UNK,

REACTIONS (5)
  - Swollen tongue [Not Recovered/Not Resolved]
  - Blood disorder [Unknown]
  - Off label use [Unknown]
  - Tongue disorder [Not Recovered/Not Resolved]
  - Secretion discharge [Not Recovered/Not Resolved]

NARRATIVE: CASE EVENT DATE: 20141014
